FAERS Safety Report 25424453 (Version 1)
Quarter: 2025Q2

REPORT INFORMATION
  Report Type: Spontaneous
  Country: US (occurrence: None)
  Receive Date: 20250611
  Receipt Date: 20250611
  Transmission Date: 20250717
  Serious: Yes (Life-Threatening, Other)
  Sender: FDA-CTU
  Company Number: None

PATIENT
  Age: 29 Year
  Sex: Female
  Weight: 63 kg

DRUGS (6)
  1. HALOPERIDOL [Suspect]
     Active Substance: HALOPERIDOL
     Indication: Product used for unknown indication
     Dates: start: 20250329
  2. DEPAKOTE [Suspect]
     Active Substance: DIVALPROEX SODIUM
     Indication: Product used for unknown indication
     Dates: start: 20250329
  3. AJOVY [Concomitant]
     Active Substance: FREMANEZUMAB-VFRM
  4. RIZATRIPTAN [Concomitant]
     Active Substance: RIZATRIPTAN
  5. OMEGA 3 [Concomitant]
     Active Substance: CAPSAICIN
  6. VITAMINS [Concomitant]
     Active Substance: VITAMINS

REACTIONS (7)
  - Dyspnoea [None]
  - Muscle contractions involuntary [None]
  - Device expulsion [None]
  - Dizziness [None]
  - Anxiety [None]
  - Constipation [None]
  - Migraine [None]

NARRATIVE: CASE EVENT DATE: 20250329
